FAERS Safety Report 10085708 (Version 1)
Quarter: 2014Q2

REPORT INFORMATION
  Report Type: Spontaneous
  Country: US (occurrence: None)
  Receive Date: 20140416
  Receipt Date: 20140416
  Transmission Date: 20141212
  Serious: Yes (Hospitalization)
  Sender: FDA-Public Use
  Company Number: DEP_01966_2014

PATIENT
  Age: 57 Year
  Sex: Female
  Weight: 47.63 kg

DRUGS (4)
  1. GRALISE 600MG [Suspect]
     Indication: PRODUCT USED FOR UNKNOWN INDICATION
     Route: 048
     Dates: start: 20140103, end: 201401
  2. LISINOPRIL [Concomitant]
  3. PRAVASTATIN [Concomitant]
  4. ASPIRIN [Concomitant]

REACTIONS (4)
  - Urinary tract infection [None]
  - Medication residue present [None]
  - Diarrhoea [None]
  - Incorrect dose administered [None]
